FAERS Safety Report 8990046 (Version 1)
Quarter: 2012Q4

REPORT INFORMATION
  Report Type: 
  Country: NO (occurrence: NO)
  Receive Date: 20121228
  Receipt Date: 20121228
  Transmission Date: 20130627
  Serious: Yes (Other)
  Sender: FDA-Public Use
  Company Number: PHHY2009NO071520

PATIENT
  Age: 76 Year
  Sex: Female

DRUGS (1)
  1. METOPROLOL SANDOZ [Suspect]

REACTIONS (2)
  - Asthma [Unknown]
  - Diarrhoea [Unknown]
